FAERS Safety Report 6172143-6 (Version None)
Quarter: 2009Q2

REPORT INFORMATION
  Report Type: 
  Country: None (occurrence: None)
  Receive Date: 20090425
  Receipt Date: 20090425
  Transmission Date: 20091009
  Serious: Yes (Life-Threatening, Other)
  Sender: FDA-Public Use
  Company Number: None

PATIENT
  Age: 66 Year
  Sex: Female
  Weight: 81.6475 kg

DRUGS (1)
  1. CROMOLYN SODIUM [Suspect]
     Indication: ASTHMA
     Dosage: 20MG/ML 1 DAY
     Dates: start: 20090421, end: 20090425

REACTIONS (2)
  - DRUG LABEL CONFUSION [None]
  - HEART RATE IRREGULAR [None]
